FAERS Safety Report 22930076 (Version 3)
Quarter: 2023Q4

REPORT INFORMATION
  Report Type: Spontaneous
  Country: US (occurrence: US)
  Receive Date: 20230911
  Receipt Date: 20231020
  Transmission Date: 20240109
  Serious: No
  Sender: FDA-Public Use
  Company Number: US-PFIZER INC-2020196293

PATIENT
  Age: 78 Year
  Sex: Female

DRUGS (3)
  1. PREMARIN [Suspect]
     Active Substance: ESTROGENS, CONJUGATED
     Dosage: 1.25 MG
  2. PREMARIN [Suspect]
     Active Substance: ESTROGENS, CONJUGATED
     Dosage: 0.45 MG, 2X/WEEK (TAKE 2 A WEEK)
  3. PREMARIN [Suspect]
     Active Substance: ESTROGENS, CONJUGATED
     Dosage: 3 DF, WEEKLY, [I ONLY TAKE LIKE 3 A WEEK]

REACTIONS (4)
  - Illness [Unknown]
  - Urinary tract infection [Unknown]
  - Gait disturbance [Unknown]
  - Intentional product misuse [Unknown]

NARRATIVE: CASE EVENT DATE: 20230801
